FAERS Safety Report 5696037-5 (Version None)
Quarter: 2008Q2

REPORT INFORMATION
  Report Type: 
  Country: None (occurrence: None)
  Receive Date: 20080407
  Receipt Date: 20080401
  Transmission Date: 20081010
  Serious: Yes (Other)
  Sender: FDA-Public Use
  Company Number: B0360174A

PATIENT
  Age: 63 Year
  Sex: Female

DRUGS (5)
  1. PAROXETINE HCL [Suspect]
     Indication: TEARFULNESS
     Route: 065
     Dates: start: 20010516
  2. DIAZEPAM [Concomitant]
     Dates: start: 19850401
  3. XANAX [Concomitant]
     Dates: start: 20011206
  4. TRAZODONE HCL [Concomitant]
     Dates: start: 20020808
  5. EFFEXOR [Concomitant]
     Dates: start: 20020106

REACTIONS (17)
  - ALOPECIA [None]
  - ANORGASMIA [None]
  - ANXIETY [None]
  - CONFUSIONAL STATE [None]
  - DRUG WITHDRAWAL SYNDROME [None]
  - HALLUCINATION [None]
  - INSOMNIA [None]
  - LETHARGY [None]
  - LIBIDO DECREASED [None]
  - LOSS OF LIBIDO [None]
  - MORBID THOUGHTS [None]
  - NAUSEA [None]
  - NIGHTMARE [None]
  - ONYCHOCLASIS [None]
  - PSYCHIATRIC SYMPTOM [None]
  - WEIGHT INCREASED [None]
  - WITHDRAWAL SYNDROME [None]
